FAERS Safety Report 21883735 (Version 1)
Quarter: 2023Q1

REPORT INFORMATION
  Report Type: Spontaneous
  Country: US (occurrence: None)
  Receive Date: 20230118
  Receipt Date: 20230118
  Transmission Date: 20230417
  Serious: No
  Sender: FDA-Public Use
  Company Number: None

PATIENT
  Sex: Female

DRUGS (1)
  1. FINGOLIMOD [Suspect]
     Active Substance: FINGOLIMOD
     Indication: Multiple sclerosis
     Dosage: OTHER QUANTITY : 0.5MG;?FREQUENCY : DAILY;?
     Route: 048
     Dates: start: 202111

REACTIONS (1)
  - Therapy non-responder [None]
